FAERS Safety Report 25578582 (Version 2)
Quarter: 2025Q3

REPORT INFORMATION
  Report Type: Spontaneous
  Country: US (occurrence: US)
  Receive Date: 20250718
  Receipt Date: 20250730
  Transmission Date: 20251021
  Serious: Yes (Hospitalization)
  Sender: ANI
  Company Number: US-ANIPHARMA-2025-US-032722

PATIENT
  Age: 56 Year
  Sex: Female
  Weight: 72.58 kg

DRUGS (11)
  1. CORTICOTROPIN [Suspect]
     Active Substance: CORTICOTROPIN
     Indication: Rheumatoid arthritis
     Route: 058
     Dates: start: 20250612
  2. TYLENOL EXTRA STRENGTH [Concomitant]
     Active Substance: ACETAMINOPHEN
  3. ALLERGY RELIEF [Concomitant]
  4. PREDNISONE [Concomitant]
     Active Substance: PREDNISONE
  5. METHOTREXATE [Concomitant]
     Active Substance: METHOTREXATE
  6. MELOXICAM [Concomitant]
     Active Substance: MELOXICAM
  7. TRAZODONE [Concomitant]
     Active Substance: TRAZODONE HYDROCHLORIDE
  8. PREGABALIN [Concomitant]
     Active Substance: PREGABALIN
  9. FENOFIBRATE [Concomitant]
     Active Substance: FENOFIBRATE
  10. ESCITALOPRAM [Concomitant]
     Active Substance: ESCITALOPRAM OXALATE
  11. VITAMIN D-1000 MAXIMUM ST [Concomitant]

REACTIONS (6)
  - Infection [Unknown]
  - Colectomy [Unknown]
  - Product dose omission issue [Recovered/Resolved]
  - Diverticulitis [Recovering/Resolving]
  - Back pain [Recovered/Resolved]
  - Large intestine perforation [Unknown]

NARRATIVE: CASE EVENT DATE: 20250627
